FAERS Safety Report 4324997-3 (Version None)
Quarter: 2004Q1

REPORT INFORMATION
  Report Type: 
  Country: None (occurrence: None)
  Receive Date: 20040322
  Receipt Date: 20040304
  Transmission Date: 20041129
  Serious: Yes (Life-Threatening, Hospitalization)
  Sender: FDA-Public Use
  Company Number: DSA_24058_2004

PATIENT
  Age: 78 Year
  Sex: Female

DRUGS (1)
  1. NAVIXEN [Suspect]
     Dosage: 600 MG Q DAY PO
     Route: 048
     Dates: start: 20030701, end: 20031201

REACTIONS (3)
  - BLOOD POTASSIUM INCREASED [None]
  - CARDIAC FAILURE CONGESTIVE [None]
  - RENAL IMPAIRMENT [None]
